FAERS Safety Report 24335543 (Version 2)
Quarter: 2024Q3

REPORT INFORMATION
  Report Type: Spontaneous
  Country: US (occurrence: US)
  Receive Date: 20240919
  Receipt Date: 20240923
  Transmission Date: 20241017
  Serious: Yes (Other)
  Sender: BIOVITRUM
  Company Number: US-BIOVITRUM-2024-US-012139

PATIENT
  Sex: Female

DRUGS (2)
  1. PACRITINIB [Suspect]
     Active Substance: PACRITINIB
     Indication: Myelofibrosis
     Dosage: BID
     Route: 048
  2. PACRITINIB [Suspect]
     Active Substance: PACRITINIB
     Dosage: BID
     Route: 048

REACTIONS (5)
  - Acute kidney injury [Unknown]
  - Gastrointestinal toxicity [Unknown]
  - Underdose [Unknown]
  - Diarrhoea [Unknown]
  - Drug intolerance [Recovered/Resolved]
